FAERS Safety Report 16696393 (Version 2)
Quarter: 2019Q3

REPORT INFORMATION
  Report Type: Report from Study
  Country: US (occurrence: US)
  Receive Date: 20190813
  Receipt Date: 20190820
  Transmission Date: 20191004
  Serious: Yes (Death, Hospitalization)
  Sender: FDA-Public Use
  Company Number: US-TAIHO ONCOLOGY  INC-EU-2019-02648

PATIENT
  Age: 77 Year
  Sex: Female

DRUGS (1)
  1. LONSURF [Suspect]
     Active Substance: TIPIRACIL HYDROCHLORIDE\TRIFLURIDINE
     Indication: COLON CANCER
     Dosage: CURRENT CYCLE UNKNOWN.
     Route: 048
     Dates: start: 20190713

REACTIONS (5)
  - Dyspnoea [Unknown]
  - Death [Fatal]
  - Asthenia [Unknown]
  - Back pain [Unknown]
  - Speech disorder [Unknown]

NARRATIVE: CASE EVENT DATE: 2019
